FAERS Safety Report 6168036-0 (Version None)
Quarter: 2009Q2

REPORT INFORMATION
  Report Type: 
  Country: None (occurrence: None)
  Receive Date: 20090423
  Receipt Date: 20090423
  Transmission Date: 20091009
  Serious: Yes (Other)
  Sender: FDA-Public Use
  Company Number: None

PATIENT
  Age: 40 Year
  Sex: Female
  Weight: 88.4514 kg

DRUGS (2)
  1. REMICADE [Suspect]
     Indication: PSORIASIS
     Dosage: 300 MG EVERY 8 WEEKS IV DRIP
     Route: 041
     Dates: start: 20080725, end: 20090331
  2. REMICADE [Suspect]
     Indication: PSORIATIC ARTHROPATHY
     Dosage: 300 MG EVERY 8 WEEKS IV DRIP
     Route: 041
     Dates: start: 20080725, end: 20090331

REACTIONS (6)
  - ACTIVITIES OF DAILY LIVING IMPAIRED [None]
  - ANTINUCLEAR ANTIBODY POSITIVE [None]
  - DNA ANTIBODY POSITIVE [None]
  - INFLUENZA [None]
  - INSOMNIA [None]
  - NIGHT SWEATS [None]
